FAERS Safety Report 5145870-7 (Version None)
Quarter: 2006Q4

REPORT INFORMATION
  Report Type: 
  Country: None (occurrence: None)
  Receive Date: 20061108
  Receipt Date: 20061025
  Transmission Date: 20070319
  Serious: Yes (Hospitalization)
  Sender: FDA-Public Use
  Company Number: US-AMGEN-STX198117

PATIENT
  Sex: Female

DRUGS (2)
  1. ENBREL [Suspect]
     Indication: RHEUMATOID ARTHRITIS
     Route: 058
     Dates: start: 20040223
  2. PLAQUENIL [Concomitant]
     Route: 065
     Dates: start: 20010101

REACTIONS (3)
  - ARTHROSCOPY [None]
  - JOINT ARTHROPLASTY [None]
  - LIMB OPERATION [None]
